FAERS Safety Report 9434497 (Version 1)
Quarter: 2013Q3

REPORT INFORMATION
  Report Type: Spontaneous
  Country: FR (occurrence: FR)
  Receive Date: 20130801
  Receipt Date: 20130801
  Transmission Date: 20140515
  Serious: Yes (Hospitalization)
  Sender: FDA-Public Use
  Company Number: FR-B.I. PHARMACEUTICALS,INC./RIDGEFIELD-2013-FF-01958FF

PATIENT
  Age: 86 Year
  Sex: Female

DRUGS (9)
  1. PRADAXA [Suspect]
     Dosage: 150 MG
     Route: 048
     Dates: start: 20121027, end: 201301
  2. AUGMENTIN [Suspect]
     Dates: start: 201210, end: 201301
  3. GLUCOPHAGE [Suspect]
     Dosage: 1500 MG
     Dates: end: 201301
  4. INEXIUM [Suspect]
     Dosage: 20 MG
     Dates: end: 201301
  5. MOVICOL [Suspect]
     Route: 048
     Dates: end: 201301
  6. PRAVASTATINE SODIQUE [Suspect]
     Dosage: 20 MG
     Dates: end: 201301
  7. CORDARONE [Suspect]
     Dosage: 100 NR
     Dates: end: 201301
  8. KARDEGIC [Suspect]
     Dosage: 75 MG
     Dates: end: 20130210
  9. LASILIX [Suspect]
     Dosage: 40 MG
     Dates: end: 20130212

REACTIONS (2)
  - Hepatitis cholestatic [Not Recovered/Not Resolved]
  - Hepatitis [Not Recovered/Not Resolved]
